FAERS Safety Report 4768662-7 (Version None)
Quarter: 2005Q3

REPORT INFORMATION
  Report Type: 
  Country: None (occurrence: None)
  Receive Date: 20050914
  Receipt Date: 20050831
  Transmission Date: 20060218
  Serious: Yes (Life-Threatening)
  Sender: FDA-Public Use
  Company Number: DEWYE943231AUG05

PATIENT
  Age: 71 Year
  Sex: Female

DRUGS (9)
  1. ENBREL [Suspect]
     Indication: RHEUMATOID ARTHRITIS
     Dosage: UNKNOWN
     Route: 058
     Dates: start: 20040801, end: 20050401
  2. LANTAREL [Suspect]
     Indication: RHEUMATOID ARTHRITIS
     Dosage: UNKNOWN
     Route: 065
     Dates: start: 19860601, end: 20041101
  3. FOLIC ACID [Concomitant]
  4. VITAMIN B12 [Concomitant]
  5. METOPROLOL SUCCINATE [Concomitant]
     Route: 048
  6. DICLOFENAC [Concomitant]
  7. PANTOZOL [Concomitant]
  8. VIGANTOLETTEN [Concomitant]
  9. CALCIUM GLUCONATE [Concomitant]

REACTIONS (1)
  - HYPERTENSIVE CRISIS [None]
